FAERS Safety Report 12552316 (Version 1)
Quarter: 2016Q3

REPORT INFORMATION
  Report Type: Spontaneous
  Country: US (occurrence: None)
  Receive Date: 20160712
  Receipt Date: 20160712
  Transmission Date: 20161109
  Serious: Yes (Other)
  Sender: FDA-Public Use
  Company Number: None

PATIENT
  Age: 40 Year
  Sex: Female
  Weight: 56.7 kg

DRUGS (7)
  1. TRIAMCINOLONE [Concomitant]
     Active Substance: TRIAMCINOLONE
  2. PREDNISONE, 20 MG WEST WARD INC [Suspect]
     Active Substance: PREDNISONE
     Indication: INFLAMMATION
     Route: 048
     Dates: start: 20160702, end: 20160706
  3. SULFAMETHOXAZOLE [Concomitant]
     Active Substance: SULFAMETHOXAZOLE
  4. CEPHALEXIN. [Concomitant]
     Active Substance: CEPHALEXIN
  5. ULTIMATE FLORA PROBIOTIC [Concomitant]
  6. PREDNISONE, 20 MG WEST WARD INC [Suspect]
     Active Substance: PREDNISONE
     Indication: CELLULITIS
     Route: 048
     Dates: start: 20160702, end: 20160706
  7. VITAMIN C [Concomitant]
     Active Substance: ASCORBIC ACID

REACTIONS (10)
  - Tenderness [None]
  - Blood glucose abnormal [None]
  - Mastication disorder [None]
  - Headache [None]
  - Fatigue [None]
  - Nausea [None]
  - Withdrawal syndrome [None]
  - Dizziness [None]
  - Asthenia [None]
  - Swelling face [None]

NARRATIVE: CASE EVENT DATE: 20160707
